FAERS Safety Report 6619715-X (Version None)
Quarter: 2010Q1

REPORT INFORMATION
  Report Type: 
  Country: None (occurrence: None)
  Receive Date: 20100304
  Receipt Date: 20100219
  Transmission Date: 20100710
  Serious: Yes (Hospitalization)
  Sender: FDA-Public Use
  Company Number: 231800J10USA

PATIENT
  Age: 61 Year
  Sex: Female
  Weight: 64 kg

DRUGS (11)
  1. REBIF [Suspect]
     Indication: MULTIPLE SCLEROSIS
     Dosage: 44 MCG, 3 IN 1 WEEKS, SUBCUTANEOUS
     Route: 058
     Dates: start: 20040721, end: 20090401
  2. ENALAPRIL MALEATE AND HYDROCHLOROTHIAZIDE [Suspect]
     Indication: HYPERTENSION
     Dates: end: 20090401
  3. ALEVE [Suspect]
     Indication: TOOTHACHE
     Dates: start: 20090401
  4. DDAVP [Suspect]
     Indication: BLADDER DISORDER
     Dates: start: 20090201, end: 20090401
  5. ADVIL LIQUI-GELS [Suspect]
     Indication: TOOTHACHE
     Dates: start: 20090401
  6. NEURONTIN [Concomitant]
  7. FOSAMAX [Concomitant]
  8. MACROBID [Concomitant]
  9. GELINQUE (ALL OTHER THERAPEUTIC PRODUCTS) [Concomitant]
  10. TYLENOL [Concomitant]
  11. ASPIRIN [Concomitant]

REACTIONS (4)
  - BLOOD SODIUM DECREASED [None]
  - BRAIN OEDEMA [None]
  - LETHARGY [None]
  - TOOTHACHE [None]
